FAERS Safety Report 14204338 (Version 2)
Quarter: 2018Q2

REPORT INFORMATION
  Report Type: Spontaneous
  Country: SE (occurrence: SE)
  Receive Date: 20171120
  Receipt Date: 20180607
  Transmission Date: 20180711
  Serious: Yes (Other)
  Sender: FDA-Public Use
  Company Number: SE-JNJFOC-20171105083

PATIENT
  Age: 50 Year
  Sex: Female

DRUGS (5)
  1. IPREN 400 MG FILMDRAGERAD TABLETT [Suspect]
     Active Substance: IBUPROFEN
     Indication: PRODUCT USED FOR UNKNOWN INDICATION
     Dosage: 10 IPREN (IBUPROFEN) 400 MG DAILY FOR ONE WEEK.
     Route: 048
     Dates: start: 201709, end: 201709
  2. BRICANYL [Concomitant]
     Active Substance: TERBUTALINE SULFATE
     Indication: PRODUCT USED FOR UNKNOWN INDICATION
     Dosage: INHALATIONSPULVER
     Route: 065
  3. MOMETASONE ACTAVIS [Concomitant]
     Indication: PRODUCT USED FOR UNKNOWN INDICATION
     Route: 065
  4. IPREN 400 MG FILMDRAGERAD TABLETT [Suspect]
     Active Substance: IBUPROFEN
     Route: 048
  5. INNOVAIR [Concomitant]
     Active Substance: BECLOMETHASONE DIPROPIONATE\FORMOTEROL
     Indication: PRODUCT USED FOR UNKNOWN INDICATION
     Dosage: INHALATION SPRAY
     Route: 065

REACTIONS (2)
  - Renal failure [Recovered/Resolved]
  - Overdose [Recovered/Resolved]

NARRATIVE: CASE EVENT DATE: 201709
